FAERS Safety Report 22788230 (Version 10)
Quarter: 2024Q4

REPORT INFORMATION
  Report Type: Report from Study
  Country: FR (occurrence: FR)
  Receive Date: 20230804
  Receipt Date: 20241104
  Transmission Date: 20250115
  Serious: Yes (Other)
  Sender: PFIZER
  Company Number: FR-PFIZER INC-PV202300132878

PATIENT
  Age: 41 Year
  Sex: Female

DRUGS (2)
  1. TOFACITINIB CITRATE [Interacting]
     Active Substance: TOFACITINIB CITRATE
     Indication: Colitis ulcerative
     Dosage: 5 MG, 2X/DAY
     Route: 048
     Dates: start: 20220217
  2. STELARA [Interacting]
     Active Substance: USTEKINUMAB
     Indication: Ankylosing spondylitis
     Dosage: UNK
     Route: 058
     Dates: start: 20230731, end: 20240114

REACTIONS (2)
  - Drug interaction [Recovered/Resolved]
  - Immunosuppression [Recovered/Resolved]

NARRATIVE: CASE EVENT DATE: 20230731
